FAERS Safety Report 13699142 (Version 1)
Quarter: 2017Q2

REPORT INFORMATION
  Report Type: Other
  Country: GB (occurrence: US)
  Receive Date: 20170628
  Receipt Date: 20170628
  Transmission Date: 20170830
  Serious: Yes (Hospitalization, Other)
  Sender: FDA-Public Use
  Company Number: US-CLARIS PHARMASERVICES-2022631

PATIENT
  Age: 80 Year
  Sex: Male

DRUGS (1)
  1. METOPROLOL. [Suspect]
     Active Substance: METOPROLOL

REACTIONS (3)
  - Syncope [Recovered/Resolved]
  - Hyperkalaemia [Recovered/Resolved]
  - Nodal rhythm [Recovered/Resolved]
